FAERS Safety Report 11626245 (Version 3)
Quarter: 2015Q4

REPORT INFORMATION
  Report Type: Report from Study
  Country: UG (occurrence: UG)
  Receive Date: 20151013
  Receipt Date: 20151203
  Transmission Date: 20160304
  Serious: Yes (Hospitalization, Other)
  Sender: FDA-Public Use
  Company Number: UG-GILEAD-2015-0176222

PATIENT
  Age: 0 Year
  Sex: Male
  Weight: 3 kg

DRUGS (10)
  1. GENTAMICIN. [Concomitant]
     Active Substance: GENTAMICIN
     Dosage: UNK
     Dates: start: 201509
  2. AMPICLOX                           /00190301/ [Concomitant]
     Indication: URINARY TRACT INFECTION
     Route: 064
     Dates: start: 20150512, end: 20150516
  3. LAMIVUDINE. [Concomitant]
     Active Substance: LAMIVUDINE
     Indication: HIV INFECTION
     Dosage: UNK
  4. FERROUS SULFATE [Concomitant]
     Active Substance: FERROUS SULFATE\FERROUS SULFATE, DRIED
     Indication: PRENATAL CARE
     Route: 064
     Dates: start: 20150630, end: 20150921
  5. FLUCAMOX                           /01357501/ [Concomitant]
     Dosage: UNK
     Dates: start: 201509
  6. GROVIT [Concomitant]
     Dosage: UNK
     Dates: start: 201509
  7. FOLIC ACID. [Concomitant]
     Active Substance: FOLIC ACID
     Indication: PRENATAL CARE
     Route: 064
     Dates: start: 20150630, end: 20150921
  8. MEBENDAZOLE. [Concomitant]
     Active Substance: MEBENDAZOLE
     Indication: PRENATAL CARE
     Route: 064
     Dates: start: 20150519, end: 20150519
  9. AMPICILLIN [Concomitant]
     Active Substance: AMPICILLIN
     Dosage: UNK
     Dates: start: 201509
  10. EMTRICITABINE/RILPIVIRINE/TENOFOVIR DF [Suspect]
     Active Substance: EMTRICITABINE\RILPIVIRINE\TENOFOVIR DISOPROXIL FUMARATE
     Indication: HIV INFECTION
     Dosage: 1 DF, QD
     Route: 064
     Dates: start: 20141220, end: 20150830

REACTIONS (2)
  - Foetal exposure during pregnancy [Recovered/Resolved]
  - Neonatal asphyxia [Recovered/Resolved]

NARRATIVE: CASE EVENT DATE: 20141220
